FAERS Safety Report 5158343-2 (Version None)
Quarter: 2006Q4

REPORT INFORMATION
  Report Type: 
  Country: None (occurrence: None)
  Receive Date: 20061121
  Receipt Date: 20061121
  Transmission Date: 20070319
  Serious: Yes (Death, Hospitalization)
  Sender: FDA-Public Use
  Company Number: None

PATIENT
  Age: 54 Year
  Sex: Male

DRUGS (6)
  1. ZOSYN [Suspect]
     Indication: URINARY TRACT INFECTION
  2. FENTANYL [Concomitant]
  3. ATIVAN [Concomitant]
  4. ASCORBIC ACID [Concomitant]
  5. REGLAN [Concomitant]
  6. MAALOX FAST BLOCKER [Concomitant]

REACTIONS (1)
  - TOXIC EPIDERMAL NECROLYSIS [None]
